FAERS Safety Report 14233187 (Version 3)
Quarter: 2019Q4

REPORT INFORMATION
  Report Type: Spontaneous
  Country: DE (occurrence: DE)
  Receive Date: 20171129
  Receipt Date: 20191030
  Transmission Date: 20200122
  Serious: Yes (Other)
  Sender: FDA-Public Use
  Company Number: DE-BIOGEN-2017BI00490059

PATIENT
  Age: 33 Year
  Sex: Female
  Weight: 60 kg

DRUGS (5)
  1. PLEGRIDY [Suspect]
     Active Substance: PEGINTERFERON BETA-1A
     Route: 058
     Dates: start: 201603, end: 201906
  2. PLEGRIDY [Suspect]
     Active Substance: PEGINTERFERON BETA-1A
     Indication: MULTIPLE SCLEROSIS
     Route: 050
     Dates: start: 20160103, end: 20171027
  3. L-THYROX [Concomitant]
     Active Substance: LEVOTHYROXINE SODIUM
     Indication: THYROID DISORDER
     Route: 050
     Dates: start: 2013
  4. PLEGRIDY [Suspect]
     Active Substance: PEGINTERFERON BETA-1A
     Route: 050
     Dates: start: 20160401, end: 20171027
  5. PLEGRIDY [Suspect]
     Active Substance: PEGINTERFERON BETA-1A
     Route: 050

REACTIONS (2)
  - Maternal exposure during pregnancy [Recovered/Resolved]
  - Abortion spontaneous [Not Recovered/Not Resolved]

NARRATIVE: CASE EVENT DATE: 20171125
